FAERS Safety Report 7749405-1 (Version None)
Quarter: 2011Q3

REPORT INFORMATION
  Report Type: 
  Country: None (occurrence: None)
  Receive Date: 20110914
  Receipt Date: 20110909
  Transmission Date: 20111222
  Serious: Yes (Other)
  Sender: FDA-Public Use
  Company Number: US-PFIZER INC-2011192386

PATIENT
  Sex: Female
  Weight: 75 kg

DRUGS (7)
  1. CLARITIN-D 24 HOUR [Concomitant]
     Indication: HYPERSENSITIVITY
     Dosage: UNK
  2. VALIUM [Concomitant]
     Indication: DIZZINESS
     Dosage: 5 MG, 2X/DAY
  3. CHANTIX [Suspect]
     Indication: SMOKING CESSATION THERAPY
     Dosage: 0.5 MG, 1X/DAY
     Route: 048
     Dates: start: 20110601, end: 20110101
  4. NICOTROL [Suspect]
     Indication: SMOKING CESSATION THERAPY
     Dosage: UNK
     Dates: start: 20110816, end: 20110817
  5. LAMICTAL [Concomitant]
     Indication: BIPOLAR DISORDER
     Dosage: 300 MG, 1X/DAY
  6. CHANTIX [Suspect]
     Dosage: 0.5 MG, UNK
     Dates: start: 20110101, end: 20110101
  7. SEROQUEL [Concomitant]
     Indication: BIPOLAR DISORDER
     Dosage: 400 MG, 1X/DAY

REACTIONS (3)
  - CHOKING [None]
  - HOMICIDAL IDEATION [None]
  - ANGER [None]
